FAERS Safety Report 9637798 (Version 1)
Quarter: 2013Q4

REPORT INFORMATION
  Report Type: Spontaneous
  Country: AU (occurrence: None)
  Receive Date: 20131018
  Receipt Date: 20131018
  Transmission Date: 20140711
  Serious: Yes (Other)
  Sender: FDA-Public Use
  Company Number: 2013P1020143

PATIENT
  Sex: 0

DRUGS (1)
  1. MITOMYCIN [Suspect]
     Indication: OCULAR NEOPLASM
     Route: 047

REACTIONS (1)
  - Lacrimation increased [None]
